FAERS Safety Report 9237761 (Version 2)
Quarter: 2013Q3

REPORT INFORMATION
  Report Type: Spontaneous
  Country: US (occurrence: US)
  Receive Date: 20130418
  Receipt Date: 20130829
  Transmission Date: 20140515
  Serious: No
  Sender: FDA-Public Use
  Company Number: US-BIOGENIDEC-2013BI033715

PATIENT
  Sex: Female

DRUGS (2)
  1. TYSABRI [Suspect]
     Indication: MULTIPLE SCLEROSIS
     Route: 042
     Dates: start: 20061031, end: 20070925
  2. TYSABRI [Suspect]
     Indication: MULTIPLE SCLEROSIS
     Route: 042
     Dates: start: 20120613

REACTIONS (6)
  - Menstrual disorder [Unknown]
  - Memory impairment [Unknown]
  - Visual impairment [Unknown]
  - Gait disturbance [Unknown]
  - Urticaria [Unknown]
  - Multiple sclerosis [Unknown]
